FAERS Safety Report 6731213-1 (Version None)
Quarter: 2010Q2

REPORT INFORMATION
  Report Type: 
  Country: None (occurrence: None)
  Receive Date: 20100518
  Receipt Date: 20100513
  Transmission Date: 20101027
  Serious: Yes (Other)
  Sender: FDA-Public Use
  Company Number: US-ABBOTT-10P-163-0644152-00

PATIENT
  Sex: Female
  Weight: 82.6 kg

DRUGS (14)
  1. HUMIRA [Suspect]
     Indication: COLITIS ULCERATIVE
     Dates: start: 20100325, end: 20100512
  2. MULTI-VITAMIN [Concomitant]
     Indication: COLITIS ULCERATIVE
     Route: 048
     Dates: start: 20100325, end: 20100512
  3. FOLIC ACID [Concomitant]
     Indication: COLITIS ULCERATIVE
     Route: 048
     Dates: start: 20100325, end: 20100512
  4. LOVAZA [Concomitant]
     Indication: COLITIS ULCERATIVE
     Route: 048
     Dates: start: 20100325, end: 20100512
  5. VITAMIN B COMPLEX TAB [Concomitant]
     Indication: COLITIS ULCERATIVE
     Route: 048
     Dates: start: 20100325, end: 20100512
  6. IRON [Concomitant]
     Indication: COLITIS ULCERATIVE
     Route: 048
     Dates: start: 20100325, end: 20100512
  7. POTASSIUM [Concomitant]
     Indication: COLITIS ULCERATIVE
     Route: 048
     Dates: start: 20100325, end: 20100512
  8. VITAMIN D [Concomitant]
     Indication: COLITIS ULCERATIVE
     Route: 048
     Dates: start: 20100325, end: 20100512
  9. ACIDOPHILUS [Concomitant]
     Indication: COLITIS ULCERATIVE
     Route: 048
     Dates: start: 20100325, end: 20100512
  10. LACTOBACILLUS [Concomitant]
     Indication: COLITIS ULCERATIVE
     Route: 048
     Dates: start: 20100325, end: 20100512
  11. PREDNISONE [Concomitant]
     Indication: COLITIS ULCERATIVE
     Route: 048
     Dates: start: 20100325, end: 20100512
  12. SYNTHROID [Concomitant]
     Indication: THYROID DISORDER
     Route: 048
     Dates: start: 20100508, end: 20100512
  13. ACETAMINOPHEN [Concomitant]
     Indication: HEADACHE
     Dosage: 2 PILLS PER DOSE, 3 TOTAL
     Route: 048
     Dates: start: 20100325, end: 20100512
  14. COFFEE [Concomitant]
     Indication: DRUG USE FOR UNKNOWN INDICATION
     Dosage: 1 SERVING DAILY
     Route: 048
     Dates: start: 20100325, end: 20100430

REACTIONS (1)
  - ECTOPIC PREGNANCY [None]
